FAERS Safety Report 20489814 (Version 3)
Quarter: 2022Q1

REPORT INFORMATION
  Report Type: Spontaneous
  Country: JP (occurrence: JP)
  Receive Date: 20220218
  Receipt Date: 20220317
  Transmission Date: 20220423
  Serious: No
  Sender: FDA-Public Use
  Company Number: JP-GSKNCCC-Case-01420784_AE-54786

PATIENT
  Age: 89 Year
  Sex: Male
  Weight: 52 kg

DRUGS (4)
  1. SOTROVIMAB [Suspect]
     Active Substance: SOTROVIMAB
     Indication: COVID-19
     Dosage: 500 MG/100 ML/30 MIN, SINGLE
     Route: 041
     Dates: start: 20220208, end: 20220208
  2. SODIUM CHLORIDE [Concomitant]
     Active Substance: SODIUM CHLORIDE
     Dosage: UNK
     Dates: start: 20220209
  3. RINACETO F [Concomitant]
     Dosage: UNK
     Dates: start: 20220208
  4. RINACETO F [Concomitant]
     Dosage: UNK
     Dates: start: 20220209

REACTIONS (5)
  - Erythema [Recovering/Resolving]
  - Urticaria [Recovering/Resolving]
  - Rash [Recovering/Resolving]
  - Drug eruption [Recovering/Resolving]
  - Infusion related reaction [Recovering/Resolving]
